FAERS Safety Report 8828284 (Version 1)
Quarter: 2012Q4

REPORT INFORMATION
  Report Type: 
  Country: FR (occurrence: FR)
  Receive Date: 20121005
  Receipt Date: 20121005
  Transmission Date: 20130627
  Serious: Yes (Death, Other)
  Sender: FDA-Public Use
  Company Number: FR-TEVA-362460ISR

PATIENT
  Age: 53 Year
  Sex: Female

DRUGS (9)
  1. VINCRISTINE [Suspect]
     Indication: HODGKIN^S DISEASE
  2. PREDNISONE [Suspect]
     Indication: ANGIOIMMUNOBLASTIC T-CELL LYMPHOMA
  3. PREDNISONE [Suspect]
     Indication: HODGKIN^S DISEASE
  4. BLEOMYCIN [Suspect]
     Indication: ANGIOIMMUNOBLASTIC T-CELL LYMPHOMA
  5. BLEOMYCIN [Suspect]
     Indication: HODGKIN^S DISEASE
  6. VINBLASTINE [Suspect]
     Indication: HODGKIN^S DISEASE
  7. CYCLOPHOSPHAMID [Suspect]
     Indication: ANGIOIMMUNOBLASTIC T-CELL LYMPHOMA
  8. CYCLOPHOSPHAMID [Suspect]
     Indication: HODGKIN^S DISEASE
  9. ADRIAMYCIN [Suspect]

REACTIONS (3)
  - Anaemia haemolytic autoimmune [Unknown]
  - Epstein-Barr virus test positive [Unknown]
  - Diffuse large B-cell lymphoma [Fatal]
